FAERS Safety Report 19673348 (Version 1)
Quarter: 2021Q3

REPORT INFORMATION
  Report Type: Spontaneous
  Country: NL (occurrence: NL)
  Receive Date: 20210809
  Receipt Date: 20210809
  Transmission Date: 20211014
  Serious: Yes (Other)
  Sender: FDA-Public Use
  Company Number: NL-AUROBINDO-AUR-APL-2021-033468

PATIENT
  Sex: Male
  Weight: 90 kg

DRUGS (4)
  1. DABIGATRAN ETEXILATE [Suspect]
     Active Substance: DABIGATRAN ETEXILATE
     Indication: ARRHYTHMIA
     Dosage: UNK (2 X A DAY 1 PIECE)
     Route: 065
     Dates: start: 20200612
  2. COMIRNATY [Suspect]
     Active Substance: TOZINAMERAN
     Indication: COVID-19 IMMUNISATION
     Dosage: 1 DOSAGE FORM
     Route: 065
     Dates: start: 20210622
  3. FLECAINIDE TABLETS 50MG [Suspect]
     Active Substance: FLECAINIDE
     Indication: ARRHYTHMIA
     Dosage: UNK (2 X A DAY 1 PIECE)
     Route: 065
     Dates: start: 20200612
  4. VERAPAMIL [Suspect]
     Active Substance: VERAPAMIL HYDROCHLORIDE
     Indication: ARRHYTHMIA
     Dosage: UNK (2 X A DAY 1 PIECE)
     Route: 065
     Dates: start: 20200612

REACTIONS (1)
  - Atrial fibrillation [Recovered/Resolved]
